FAERS Safety Report 9808084 (Version 2)
Quarter: 2014Q1

REPORT INFORMATION
  Report Type: Spontaneous
  Country: DE (occurrence: DE)
  Receive Date: 20140110
  Receipt Date: 20140227
  Transmission Date: 20141002
  Serious: Yes (Other)
  Sender: FDA-Public Use
  Company Number: DE-GLAXOSMITHKLINE-D0082399A

PATIENT
  Age: 78 Year
  Sex: Male
  Weight: 100 kg

DRUGS (8)
  1. DUODART [Suspect]
     Route: 048
     Dates: start: 20131212, end: 20131217
  2. PHENPROCOUMON [Concomitant]
  3. ACETYLSALICYLIC ACID [Concomitant]
     Route: 048
  4. BISOPROLOL [Concomitant]
     Route: 048
  5. VALSARTAN / HYDROCHLOROTHIAZIDE [Concomitant]
     Route: 065
  6. PANTOPRAZOL [Concomitant]
     Route: 065
  7. EZETIMIBE [Concomitant]
     Route: 065
  8. SIMVASTATINE [Concomitant]
     Route: 065

REACTIONS (4)
  - Dizziness [Recovering/Resolving]
  - Myalgia [Recovering/Resolving]
  - Gastric disorder [Recovering/Resolving]
  - Blood pressure increased [Recovering/Resolving]
